FAERS Safety Report 22075913 (Version 1)
Quarter: 2023Q1

REPORT INFORMATION
  Report Type: Spontaneous
  Country: CN (occurrence: CN)
  Receive Date: 20230308
  Receipt Date: 20230308
  Transmission Date: 20230417
  Serious: Yes (Other)
  Sender: FDA-Public Use
  Company Number: CN-009507513-2303CHN002262

PATIENT
  Age: 63 Year
  Sex: Male

DRUGS (11)
  1. JANUVIA [Suspect]
     Active Substance: SITAGLIPTIN PHOSPHATE
     Indication: Hyperglycaemia
     Dosage: 100 MG, THREE TIMES A DAY (TID)
     Route: 048
     Dates: start: 20200907, end: 20200917
  2. CAPTOPRIL [Suspect]
     Active Substance: CAPTOPRIL
     Indication: Hypertension
     Dosage: 25 MILLIGRAM, ONCE A DAY (QD)
     Route: 048
     Dates: start: 20200909, end: 20200917
  3. FUROSEMIDE [Suspect]
     Active Substance: FUROSEMIDE
     Indication: Hypertension
     Dosage: 25 MILLIGRAM, TWICE A DAY (BID).
     Route: 048
     Dates: start: 20200908, end: 20200917
  4. PANTOPRAZOLE SODIUM [Suspect]
     Active Substance: PANTOPRAZOLE SODIUM
     Indication: Hyperglycaemia
     Dosage: 20 MILLIGRAM, TID
     Route: 048
     Dates: start: 20200907, end: 20200917
  5. METFORMIN HYDROCHLORIDE [Suspect]
     Active Substance: METFORMIN HYDROCHLORIDE
     Indication: Hyperglycaemia
     Dosage: 0.5 GRAM, TID
     Route: 048
     Dates: start: 20200907, end: 20200910
  6. SPIRONOLACTONE [Suspect]
     Active Substance: SPIRONOLACTONE
     Indication: Hypertension
     Dosage: 20 MILLIGRAM, BID
     Route: 048
     Dates: start: 20200908, end: 20200917
  7. INVERT SUGAR [Suspect]
     Active Substance: INVERT SUGAR
     Indication: Hyperglycaemia
     Dosage: 20 MILLIGRAM, QD
     Route: 041
     Dates: start: 20200907, end: 20200917
  8. ACARBOSE [Suspect]
     Active Substance: ACARBOSE
     Indication: Hyperglycaemia
     Dosage: 50 MILLIGRAM, TID
     Route: 048
     Dates: start: 20200907, end: 20200910
  9. ACARBOSE [Suspect]
     Active Substance: ACARBOSE
     Dosage: 100 MILLIGRAM, TID
     Route: 048
     Dates: start: 20200911, end: 20200917
  10. REPAGLINIDE [Concomitant]
     Active Substance: REPAGLINIDE
     Indication: Hyperglycaemia
     Dosage: 2 MILLIGRAM, THREE TIMES A DAY (TID)
     Route: 048
     Dates: start: 20200911, end: 20200917
  11. LIGUSTRAZINE HYDROCHLORIDE [Concomitant]
     Active Substance: LIGUSTRAZINE HYDROCHLORIDE
     Indication: Hyperglycaemia
     Dosage: 80 MILLIGRAM, QD
     Route: 041
     Dates: start: 20200914, end: 20200917

REACTIONS (3)
  - Nephropathy toxic [Unknown]
  - Incorrect dose administered [Unknown]
  - Product use issue [Unknown]

NARRATIVE: CASE EVENT DATE: 20200907
